FAERS Safety Report 5023608-1 (Version None)
Quarter: 2006Q2

REPORT INFORMATION
  Report Type: 
  Country: None (occurrence: None)
  Receive Date: 20060606
  Receipt Date: 20060524
  Transmission Date: 20061013
  Serious: Yes (Other)
  Sender: FDA-Public Use
  Company Number: 2006-01291

PATIENT
  Sex: Female

DRUGS (1)
  1. VELCADE [Suspect]
     Indication: MULTIPLE MYELOMA
     Dates: start: 20050801

REACTIONS (8)
  - DECUBITUS ULCER [None]
  - FALL [None]
  - FEMUR FRACTURE [None]
  - HAEMOGLOBIN DECREASED [None]
  - NEUROPATHY [None]
  - ORTHOSTATIC HYPOTENSION [None]
  - STAPHYLOCOCCAL INFECTION [None]
  - THERAPY NON-RESPONDER [None]
